FAERS Safety Report 19046832 (Version 1)
Quarter: 2021Q1

REPORT INFORMATION
  Report Type: Spontaneous
  Country: CA (occurrence: CA)
  Receive Date: 20210322
  Receipt Date: 20210322
  Transmission Date: 20210420
  Serious: Yes (Other)
  Sender: FDA-Public Use
  Company Number: CA-JNJFOC-20210331670

PATIENT
  Age: 31 Year
  Sex: Female

DRUGS (3)
  1. MEZAVANT [Concomitant]
     Active Substance: MESALAMINE
     Dosage: DELAYED AND EXTENDED RELEASE
  2. DESOXIMETASONE. [Concomitant]
     Active Substance: DESOXIMETASONE
  3. INFLIXIMAB, RECOMBINANT [Suspect]
     Active Substance: INFLIXIMAB
     Indication: COLITIS ULCERATIVE
     Route: 042

REACTIONS (8)
  - Rash macular [Unknown]
  - Rash [Unknown]
  - Off label use [Unknown]
  - Heart rate irregular [Unknown]
  - Intentional product use issue [Unknown]
  - Alopecia [Unknown]
  - Blood pressure fluctuation [Unknown]
  - Condition aggravated [Unknown]
